FAERS Safety Report 8971358 (Version 4)
Quarter: 2012Q4

REPORT INFORMATION
  Report Type: 
  Country: DE (occurrence: DE)
  Receive Date: 20121218
  Receipt Date: 20121228
  Transmission Date: 20130627
  Serious: Yes (Death, Hospitalization, Other)
  Sender: FDA-Public Use
  Company Number: DE-BAYER-2012-119621

PATIENT
  Age: 71 Year
  Sex: Male
  Weight: 103.86 kg

DRUGS (4)
  1. BLINDED SORAFENIB (RAF KINASE INHIBITOR) [Suspect]
     Indication: METASTATIC OCULAR MELANOMA
     Dosage: Daily dose 600 mg
     Route: 048
     Dates: start: 20121008
  2. BLINDED SORAFENIB (RAF KINASE INHIBITOR) [Suspect]
     Indication: METASTATIC OCULAR MELANOMA
     Dosage: 400 mg, QD
     Dates: end: 20121113
  3. SORAFENIB (RAF KINASE INHIBITOR) [Suspect]
     Indication: METASTATIC OCULAR MELANOMA
     Dosage: 800 mg, QD
     Route: 048
     Dates: start: 201208
  4. SORAFENIB (RAF KINASE INHIBITOR) [Suspect]
     Indication: METASTATIC OCULAR MELANOMA
     Dosage: 400 mg, QD
     Route: 048
     Dates: start: 20120827, end: 20121008

REACTIONS (8)
  - Acute hepatic failure [Fatal]
  - Blood bilirubin increased [Fatal]
  - General physical health deterioration [Fatal]
  - Blood lactate dehydrogenase increased [Fatal]
  - Dizziness [Fatal]
  - Vomiting [Fatal]
  - Nausea [Fatal]
  - Palmar-plantar erythrodysaesthesia syndrome [None]
